FAERS Safety Report 9034857 (Version 1)
Quarter: 2013Q1

REPORT INFORMATION
  Report Type: Spontaneous
  Country: US (occurrence: US)
  Receive Date: 20130128
  Receipt Date: 20130128
  Transmission Date: 20140127
  Serious: Yes (Other)
  Sender: FDA-Public Use
  Company Number: PHEH2013US002218

PATIENT
  Sex: Female

DRUGS (7)
  1. RECLAST [Suspect]
     Indication: OSTEOPOROSIS
     Dosage: ONCE A YEAR
     Route: 042
  2. PREMARIN [Concomitant]
     Indication: HOT FLUSH
     Dosage: 0.3 MG, UNK
     Route: 048
  3. CALCIUM [Concomitant]
     Dosage: 1000 MG, UNK
  4. VITAMIN D [Concomitant]
     Dosage: 1000 MG, UNK
  5. GLUCOSAMINE [Concomitant]
     Dosage: 1000 MG, UNK
  6. BABY ASPIRIN [Concomitant]
     Dosage: 81 MG, UNK
  7. MAGNESIUM [Concomitant]
     Dosage: 250 MG, UNK

REACTIONS (1)
  - Femur fracture [Unknown]
